FAERS Safety Report 4997810-9 (Version None)
Quarter: 2006Q2

REPORT INFORMATION
  Report Type: 
  Country: None (occurrence: None)
  Receive Date: 20060510
  Receipt Date: 20051201
  Transmission Date: 20061013
  Serious: No
  Sender: FDA-Public Use
  Company Number: US-BRISTOL-MYERS SQUIBB COMPANY-13201165

PATIENT
  Age: 56 Year
  Sex: Male
  Weight: 107 kg

DRUGS (1)
  1. MONOPRIL [Suspect]
     Indication: HYPERTENSION

REACTIONS (3)
  - CHEST DISCOMFORT [None]
  - MALAISE [None]
  - THROAT TIGHTNESS [None]
